FAERS Safety Report 6752909-1 (Version None)
Quarter: 2010Q2

REPORT INFORMATION
  Report Type: 
  Country: None (occurrence: None)
  Receive Date: 20100602
  Receipt Date: 20100602
  Transmission Date: 20101027
  Serious: Yes (Life-Threatening, Other)
  Sender: FDA-Public Use
  Company Number: None

PATIENT
  Age: 2 Year
  Sex: Female
  Weight: 15.5 kg

DRUGS (6)
  1. DEXMEDETOMIDINE HYDROCHLORIDE [Suspect]
     Indication: MECHANICAL VENTILATION
     Dosage: 1 MCG/KG/HR INFUSION CONTINUOS INFUSION IV 5/23/2010 - 5/24/2010
     Route: 042
     Dates: start: 20100523, end: 20100524
  2. DEXMEDETOMIDINE HYDROCHLORIDE [Suspect]
     Indication: SEDATION
     Dosage: 1 MCG/KG/HR INFUSION CONTINUOS INFUSION IV 5/23/2010 - 5/24/2010
     Route: 042
     Dates: start: 20100523, end: 20100524
  3. KETAMINE [Concomitant]
  4. PANTOPRAZOLE IV [Concomitant]
  5. MILRINONE IV [Concomitant]
  6. EPINEPHERINE IV [Concomitant]

REACTIONS (2)
  - BRADYCARDIA [None]
  - CARDIAC ARREST [None]
